FAERS Safety Report 12654825 (Version 2)
Quarter: 2016Q3

REPORT INFORMATION
  Report Type: Spontaneous
  Country: US (occurrence: US)
  Receive Date: 20160816
  Receipt Date: 20160825
  Transmission Date: 20161109
  Serious: Yes (Other)
  Sender: FDA-Public Use
  Company Number: US-GLAXOSMITHKLINE-US2016116257

PATIENT
  Sex: Female

DRUGS (15)
  1. ANORO ELLIPTA [Suspect]
     Active Substance: UMECLIDINIUM BROMIDE\VILANTEROL TRIFENATATE
     Indication: CARCINOID TUMOUR PULMONARY
  2. METOPROLOL. [Concomitant]
     Active Substance: METOPROLOL
  3. ANORO ELLIPTA [Suspect]
     Active Substance: UMECLIDINIUM BROMIDE\VILANTEROL TRIFENATATE
     Indication: ASTHMA
  4. DOXYCYCLINE. [Concomitant]
     Active Substance: DOXYCYCLINE
  5. METFORMIN [Concomitant]
     Active Substance: METFORMIN HYDROCHLORIDE
  6. OMEPRAZOLE. [Concomitant]
     Active Substance: OMEPRAZOLE
  7. PROAIR HFA [Concomitant]
     Active Substance: ALBUTEROL SULFATE
  8. VENTOLIN [Concomitant]
     Active Substance: ALBUTEROL SULFATE
  9. LOSARTIN [Concomitant]
     Active Substance: LOSARTAN
  10. MONTELUKAST [Concomitant]
     Active Substance: MONTELUKAST SODIUM
  11. GLIMEPIRIDE. [Concomitant]
     Active Substance: GLIMEPIRIDE
  12. CALCIUM [Concomitant]
     Active Substance: CALCIUM
  13. ANORO ELLIPTA [Suspect]
     Active Substance: UMECLIDINIUM BROMIDE\VILANTEROL TRIFENATATE
     Indication: CHRONIC OBSTRUCTIVE PULMONARY DISEASE
     Dosage: 1 PUFF(S), QD
     Route: 055
     Dates: start: 2015
  14. ATORVASTATIN [Concomitant]
     Active Substance: ATORVASTATIN
  15. CODEINE PHOSPHATE + GUAIFENESIN [Concomitant]

REACTIONS (5)
  - Cough [Unknown]
  - Pneumonia [Recovered/Resolved]
  - Cellulitis [Recovering/Resolving]
  - Drug ineffective [Unknown]
  - Chronic obstructive pulmonary disease [Unknown]

NARRATIVE: CASE EVENT DATE: 2016
